FAERS Safety Report 9735253 (Version 1)
Quarter: 2013Q4

REPORT INFORMATION
  Report Type: Spontaneous
  Country: JP (occurrence: None)
  Receive Date: 20131204
  Receipt Date: 20131204
  Transmission Date: 20140711
  Serious: Yes (Other)
  Sender: FDA-Public Use
  Company Number: SYM-2013-13391

PATIENT
  Sex: 0

DRUGS (5)
  1. FLUOROURACIL [Suspect]
     Indication: BREAST CANCER
  2. EPIRUBICIN (EPIRUBICIN) (EPIRUBICIN) [Suspect]
     Indication: BREAST CANCER
  3. CYCLOPHOSPHAMIDE [Suspect]
     Indication: BREAST CANCER
  4. DOCETAXEL [Suspect]
     Indication: BREAST CANCER
     Dosage: EVERY THREE WEEKS
  5. TRASTUZUMAB [Suspect]
     Indication: BREAST CANCER

REACTIONS (1)
  - Febrile neutropenia [None]
